FAERS Safety Report 14765818 (Version 1)
Quarter: 2018Q2

REPORT INFORMATION
  Report Type: Spontaneous
  Country: US (occurrence: US)
  Receive Date: 20180416
  Receipt Date: 20180416
  Transmission Date: 20180711
  Serious: No
  Sender: FDA-Public Use
  Company Number: US-MYLANLABS-2018M1019945

PATIENT
  Sex: Male
  Weight: 98 kg

DRUGS (1)
  1. LIDOCAINE PATCH [Suspect]
     Active Substance: LIDOCAINE
     Indication: BACK PAIN
     Dosage: 3 PATCHES FOR 12 HOURS IN A 24 HOUR PERIOD
     Route: 003

REACTIONS (6)
  - Product quality issue [Unknown]
  - Application site rash [Recovered/Resolved]
  - Application site discomfort [Recovered/Resolved]
  - Product adhesion issue [Unknown]
  - Application site erythema [Recovered/Resolved]
  - Application site pruritus [Recovered/Resolved]
